FAERS Safety Report 4306761-4 (Version None)
Quarter: 2004Q1

REPORT INFORMATION
  Report Type: 
  Country: None (occurrence: None)
  Receive Date: 20040225
  Receipt Date: 20040209
  Transmission Date: 20041129
  Serious: Yes (Hospitalization)
  Sender: FDA-Public Use
  Company Number: USA040156889

PATIENT
  Age: 77 Year
  Sex: Female
  Weight: 60 kg

DRUGS (10)
  1. FORTEO [Suspect]
     Indication: OSTEOPOROSIS
     Dosage: 20 UG/DAY
     Dates: start: 20031117, end: 20040109
  2. GLIPIZIDE /METFORMIN [Concomitant]
  3. LASIX [Concomitant]
  4. K-DUR 10 [Concomitant]
  5. PLAVIX [Concomitant]
  6. ACHIPHEX (RABEPRAZOLE SODIUM) [Concomitant]
  7. TOPROL-XL [Concomitant]
  8. ZESTRIL [Concomitant]
  9. ZOCOR [Concomitant]
  10. VIOXX [Concomitant]

REACTIONS (6)
  - BACK PAIN [None]
  - BLOOD POTASSIUM INCREASED [None]
  - BLOOD UREA INCREASED [None]
  - CELLULITIS [None]
  - LIMB INJURY [None]
  - URINE OUTPUT DECREASED [None]
